FAERS Safety Report 6243953-1 (Version None)
Quarter: 2009Q2

REPORT INFORMATION
  Report Type: 
  Country: None (occurrence: None)
  Receive Date: 20090623
  Receipt Date: 20090609
  Transmission Date: 20091009
  Serious: No
  Sender: FDA-Public Use
  Company Number: 2009006838

PATIENT
  Age: 46 Year
  Sex: Male

DRUGS (9)
  1. FENTORA [Suspect]
     Indication: MIGRAINE
     Dosage: 400 MCG (400 MCG, 1 IN 1 AS REQUIRED), BU 600 MCG (600 MCG, 1 IN 1 AS REQUIRED) BU
     Route: 002
     Dates: start: 20090501
  2. AVINZA [Concomitant]
  3. SYNTHROID [Concomitant]
  4. LAMOTRIGINE [Concomitant]
  5. DIAZEPAM [Concomitant]
  6. PHENERGAN (PROMETHAZINE) [Concomitant]
  7. ASPIRIN [Concomitant]
  8. EXCEDRIN MIGRAINE (ACETYLSALICYLIC ACID, CAFFEINE, PARACETAMOL) [Concomitant]
  9. GENERIC AMBIEN (ZOLPIDEM) [Concomitant]

REACTIONS (4)
  - APPLICATION SITE REACTION [None]
  - CONTRAINDICATION TO MEDICAL TREATMENT [None]
  - DRUG INEFFECTIVE [None]
  - DRUG PRESCRIBING ERROR [None]
